FAERS Safety Report 4662877-4 (Version None)
Quarter: 2005Q2

REPORT INFORMATION
  Report Type: 
  Country: None (occurrence: None)
  Receive Date: 20050502
  Receipt Date: 20050204
  Transmission Date: 20051028
  Serious: No
  Sender: FDA-Public Use
  Company Number: 200510998US

PATIENT
  Age: 32 Year
  Sex: Female

DRUGS (1)
  1. KETEK [Suspect]
     Indication: SINUSITIS
     Dosage: 400 MG QD PO
     Route: 048
     Dates: start: 20050203, end: 20050204

REACTIONS (2)
  - VISION BLURRED [None]
  - VISUAL ACUITY REDUCED [None]
